FAERS Safety Report 13420506 (Version 5)
Quarter: 2019Q4

REPORT INFORMATION
  Report Type: Report from Study
  Country: FR (occurrence: FR)
  Receive Date: 20170407
  Receipt Date: 20191002
  Transmission Date: 20200122
  Serious: Yes (Hospitalization)
  Sender: FDA-Public Use
  Company Number: FR-PFIZER INC-2017136161

PATIENT
  Age: 63 Year
  Sex: Female
  Weight: 51 kg

DRUGS (3)
  1. SUTENT [Suspect]
     Active Substance: SUNITINIB MALATE
     Dosage: 50 MG, 1X/DAY
     Dates: start: 20170121, end: 20170206
  2. AVELUMAB [Suspect]
     Active Substance: AVELUMAB
     Indication: RENAL CANCER
     Dosage: UNK
     Route: 042
     Dates: start: 20161108, end: 20161223
  3. AXITINIB [Suspect]
     Active Substance: AXITINIB
     Indication: RENAL CANCER
     Dosage: UNK
     Route: 048
     Dates: start: 20161108, end: 20170108

REACTIONS (2)
  - Jaundice [Recovered/Resolved]
  - Bile duct stone [Recovered/Resolved]

NARRATIVE: CASE EVENT DATE: 20170201
